APPROVED DRUG PRODUCT: IBU
Active Ingredient: IBUPROFEN
Strength: 400MG
Dosage Form/Route: TABLET;ORAL
Application: N018197 | Product #001
Applicant: BASF CORP
Approved: Approved Prior to Jan 1, 1982 | RLD: No | RS: No | Type: DISCN